FAERS Safety Report 6015980-0 (Version None)
Quarter: 2008Q4

REPORT INFORMATION
  Report Type: 
  Country: None (occurrence: None)
  Receive Date: 20081222
  Receipt Date: 20081219
  Transmission Date: 20090506
  Serious: Yes (Hospitalization)
  Sender: FDA-Public Use
  Company Number: US-BRISTOL-MYERS SQUIBB COMPANY-14413546

PATIENT
  Age: 60 Year
  Sex: Male

DRUGS (19)
  1. ERBITUX [Suspect]
     Indication: HEAD AND NECK CANCER
     Dosage: INITIATED ON 15SEP08:844MG
     Route: 042
     Dates: start: 20081103, end: 20081103
  2. CARBOPLATIN [Suspect]
     Indication: HEAD AND NECK CANCER
     Dosage: INITIATED ON 22SEP08:219MG
     Route: 042
     Dates: start: 20081103, end: 20081103
  3. ABRAXANE [Suspect]
     Indication: HEAD AND NECK CANCER
     Dosage: ABRAXANE -INJECTABLE SUSPENSION(ABI-007) INITIATED ON 22SEP08:42MG
     Route: 042
     Dates: start: 20081103, end: 20081103
  4. ATIVAN [Concomitant]
     Indication: NAUSEA
     Route: 048
     Dates: start: 20080919
  5. DECADRON [Concomitant]
     Dates: start: 20080915
  6. DIFLUCAN [Concomitant]
     Dates: start: 20081103
  7. FENTANYL-100 [Concomitant]
     Dates: start: 20081020
  8. FLONASE [Concomitant]
     Dosage: NASAL SPRAY
     Dates: start: 20070719
  9. LACTULOSE [Concomitant]
     Dates: start: 20081009
  10. OXYCODONE HCL [Concomitant]
     Dates: start: 20081103
  11. PRESERVISION LUTEIN [Concomitant]
     Dates: start: 20070719
  12. PRILOSEC [Concomitant]
     Dates: start: 20081103
  13. REGLAN [Concomitant]
     Indication: NAUSEA
     Dates: start: 20080915
  14. ROBITUSSIN [Concomitant]
     Indication: DRY MOUTH
     Dates: start: 20080929
  15. ROXICET [Concomitant]
     Dates: start: 20081017
  16. SENOKOT [Concomitant]
     Dates: start: 20081008
  17. ZOFRAN [Concomitant]
     Indication: NAUSEA
     Dates: start: 20081103
  18. ZOFRAN [Concomitant]
     Indication: VOMITING
     Dates: start: 20081103
  19. KEFLEX [Concomitant]
     Dates: start: 20080816

REACTIONS (3)
  - ASPIRATION [None]
  - DYSPNOEA [None]
  - VOMITING [None]
